FAERS Safety Report 15706816 (Version 1)
Quarter: 2018Q4

REPORT INFORMATION
  Report Type: Spontaneous
  Country: CZ (occurrence: CZ)
  Receive Date: 20181210
  Receipt Date: 20181210
  Transmission Date: 20190205
  Serious: Yes (Death, Other)
  Sender: FDA-Public Use
  Company Number: CZ-MYLANLABS-2018M1091703

PATIENT

DRUGS (5)
  1. ETOPOSIDE. [Suspect]
     Active Substance: ETOPOSIDE
     Indication: EWING^S SARCOMA
     Dosage: 150 MG/M2, UNK, FOR 3 DAYS, CYCLICALLY EVERY 3 WEEKS ; CYCLICAL
     Route: 065
  2. VINCRISTINE [Suspect]
     Active Substance: VINCRISTINE
     Indication: EWING^S SARCOMA
     Dosage: ON DAY 1, CYCLICALLY EVERY 3 WEEKS ; CYCLICAL
     Route: 065
  3. DOXORUBICIN [Suspect]
     Active Substance: DOXORUBICIN
     Indication: EWING^S SARCOMA
     Dosage: FOR 3 DAYS, CYCLICALLY EVERY 3 WEEKS ; CYCLICAL
     Route: 065
  4. MESNA. [Concomitant]
     Active Substance: MESNA
     Indication: EWING^S SARCOMA
     Dosage: UNK UNK, CYCLE
     Route: 065
  5. IFOSFAMIDE. [Suspect]
     Active Substance: IFOSFAMIDE
     Indication: EWING^S SARCOMA
     Dosage: 3000 MG/M2, UNK, FOR 3 DAYS, CYCLICALLY EVERY 3 WEEKS ; CYCLICAL
     Route: 065

REACTIONS (3)
  - Pulmonary embolism [Fatal]
  - Venous thrombosis [Unknown]
  - Febrile neutropenia [Fatal]
